FAERS Safety Report 21285411 (Version 3)
Quarter: 2022Q4

REPORT INFORMATION
  Report Type: Report from Study
  Country: CA (occurrence: CA)
  Receive Date: 20220902
  Receipt Date: 20221109
  Transmission Date: 20230113
  Serious: Yes (Other)
  Sender: FDA-Public Use
  Company Number: CA-TAKEDA-2022TUS060472

PATIENT
  Age: 19 Year
  Sex: Male

DRUGS (6)
  1. VEDOLIZUMAB [Suspect]
     Active Substance: VEDOLIZUMAB
     Indication: Crohn^s disease
     Dosage: 300 MILLIGRAM
     Route: 042
     Dates: start: 20220504
  2. VEDOLIZUMAB [Suspect]
     Active Substance: VEDOLIZUMAB
     Indication: Crohn^s disease
     Dosage: UNK
     Route: 058
     Dates: start: 20220817
  3. VEDOLIZUMAB [Suspect]
     Active Substance: VEDOLIZUMAB
     Dosage: UNK
     Route: 058
     Dates: start: 202208
  4. CALCIUM [Concomitant]
     Active Substance: CALCIUM
     Dosage: UNK
  5. IRON [Concomitant]
     Active Substance: IRON
     Dosage: UNK
  6. VITAMIN D [Concomitant]
     Active Substance: VITAMIN D NOS
     Dosage: UNK

REACTIONS (2)
  - Crohn^s disease [Unknown]
  - Off label use [Unknown]

NARRATIVE: CASE EVENT DATE: 20220801
